FAERS Safety Report 5030554-6 (Version None)
Quarter: 2006Q2

REPORT INFORMATION
  Report Type: 
  Country: None (occurrence: None)
  Receive Date: 20060615
  Receipt Date: 20060607
  Transmission Date: 20061013
  Serious: Yes (Other)
  Sender: FDA-Public Use
  Company Number: 2006-06-0475

PATIENT
  Age: 58 Year
  Sex: Female

DRUGS (4)
  1. NITRO-DUR [Suspect]
     Dosage: TRANSDERMAL
     Route: 062
  2. HYDRALAZINE HCL [Suspect]
     Dosage: 16 DAILY
  3. CATAPRES [Suspect]
  4. PLAVIX [Suspect]
     Dosage: 1 DAILY

REACTIONS (1)
  - CARDIAC FAILURE CONGESTIVE [None]
